FAERS Safety Report 24045949 (Version 1)
Quarter: 2024Q3

REPORT INFORMATION
  Report Type: Spontaneous
  Country: PH (occurrence: PH)
  Receive Date: 20240703
  Receipt Date: 20240703
  Transmission Date: 20241017
  Serious: Yes (Other)
  Sender: GILEAD
  Company Number: PH-GILEAD-2024-0679279

PATIENT
  Age: 32 Year
  Sex: Male

DRUGS (1)
  1. VIREAD [Suspect]
     Active Substance: TENOFOVIR DISOPROXIL FUMARATE
     Indication: Chronic hepatitis B
     Dosage: 300 MG, QD (FOR 6 MONTHS)
     Route: 065

REACTIONS (1)
  - Hepatitis B reactivation [Not Recovered/Not Resolved]
